FAERS Safety Report 8879681 (Version 1)
Quarter: 2012Q4

REPORT INFORMATION
  Report Type: Report from Study
  Country: US (occurrence: US)
  Receive Date: 20121031
  Receipt Date: 20121031
  Transmission Date: 20130627
  Serious: Yes (Other)
  Sender: FDA-Public Use
  Company Number: US-ABBOTT-12P-163-0985480-00

PATIENT
  Age: 60 None
  Sex: Female

DRUGS (10)
  1. HUMIRA [Suspect]
     Indication: PSORIATIC ARTHROPATHY
     Route: 058
     Dates: start: 20120907, end: 20120907
  2. METHOTREXATE [Suspect]
     Indication: PRODUCT USED FOR UNKNOWN INDICATION
     Dosage: 7 tabs weekly
     Dates: start: 201209
  3. METHOTREXATE [Suspect]
     Dosage: 6 tabs weekly
  4. METHOTREXATE [Suspect]
     Dosage: 6 tabs weekly
  5. FOLIC ACID [Concomitant]
     Indication: PRODUCT USED FOR UNKNOWN INDICATION
     Dosage: 2 MG DAILY
     Dates: end: 20120912
  6. LEUCOVORIN [Concomitant]
     Indication: PRODUCT USED FOR UNKNOWN INDICATION
     Dosage: 1 TAB WEEKLY
     Dates: end: 20120912
  7. CELEBREX [Concomitant]
     Indication: PRODUCT USED FOR UNKNOWN INDICATION
  8. ESTROGEN NOS [Concomitant]
     Indication: PRODUCT USED FOR UNKNOWN INDICATION
  9. LASIX [Concomitant]
     Indication: FLUID RETENTION
  10. POTASSIUM [Concomitant]
     Indication: FLUID RETENTION

REACTIONS (17)
  - Hypoacusis [Recovering/Resolving]
  - Blister [Unknown]
  - Ear infection [Unknown]
  - Sinusitis [Recovering/Resolving]
  - Dizziness [Unknown]
  - Vertigo [Recovering/Resolving]
  - Pruritus [Unknown]
  - Nasopharyngitis [Unknown]
  - Influenza like illness [Unknown]
  - Tinnitus [Unknown]
  - Balance disorder [Unknown]
  - Ear discomfort [Recovering/Resolving]
  - Headache [Recovering/Resolving]
  - Headache [Recovering/Resolving]
  - Hypoacusis [Recovering/Resolving]
  - Headache [Unknown]
  - Malaise [Unknown]
